FAERS Safety Report 14872718 (Version 1)
Quarter: 2018Q2

REPORT INFORMATION
  Report Type: Report from Study
  Country: US (occurrence: US)
  Receive Date: 20180510
  Receipt Date: 20180510
  Transmission Date: 20180711
  Serious: Yes (Hospitalization)
  Sender: FDA-Public Use
  Company Number: US-ROCHE-2119523

PATIENT
  Age: 81 Year
  Sex: Male
  Weight: 81.27 kg

DRUGS (3)
  1. ESBRIET [Suspect]
     Active Substance: PIRFENIDONE
     Dosage: 2 PILLS (EACH PILL 267MG) THREE TIMES PER DAY ;ONGOING: YES
     Route: 048
     Dates: start: 20180501
  2. ESBRIET [Suspect]
     Active Substance: PIRFENIDONE
     Dosage: ONE PILL THREE TIMES A DAY
     Route: 048
     Dates: start: 201804
  3. ESBRIET [Suspect]
     Active Substance: PIRFENIDONE
     Indication: IDIOPATHIC PULMONARY FIBROSIS
     Dosage: ONE PILL THREE TIMES A DAY ;ONGOING: NO
     Route: 048
     Dates: start: 20180323, end: 201804

REACTIONS (7)
  - Prostatomegaly [Recovering/Resolving]
  - Gastric disorder [Recovering/Resolving]
  - Urinary tract infection [Recovering/Resolving]
  - Fluid retention [Unknown]
  - Malaise [Recovering/Resolving]
  - Decreased appetite [Recovering/Resolving]
  - Pneumonia [Recovering/Resolving]

NARRATIVE: CASE EVENT DATE: 201804
